FAERS Safety Report 9705617 (Version 2)
Quarter: 2015Q3

REPORT INFORMATION
  Report Type: Spontaneous
  Country: US (occurrence: US)
  Receive Date: 20131122
  Receipt Date: 20150803
  Transmission Date: 20151125
  Serious: No
  Sender: FDA-Public Use
  Company Number: US-GILEAD-2008-0017347

PATIENT
  Age: 77 Year
  Sex: Female
  Weight: 44.91 kg

DRUGS (12)
  1. ACTONEL [Concomitant]
     Active Substance: RISEDRONATE SODIUM
     Route: 048
  2. LUMIGAN 0.03% EYE DROPS [Concomitant]
     Route: 046
  3. CALCIUM [Concomitant]
     Active Substance: CALCIUM
     Route: 048
  4. MULTIVITAMIN [Concomitant]
     Active Substance: VITAMINS
     Route: 048
  5. FML-S LIQUIFILM EYE DROPS [Concomitant]
     Route: 047
  6. TRIAM-HCTZ [Concomitant]
     Route: 048
  7. RESTASIS 0.05% EYE EMULSION [Concomitant]
     Route: 046
  8. LETAIRIS [Suspect]
     Active Substance: AMBRISENTAN
     Indication: PULMONARY ARTERIAL HYPERTENSION
     Route: 048
     Dates: start: 20080530
  9. COUMADIN [Concomitant]
     Active Substance: WARFARIN SODIUM
     Dosage: AS DIRECTED
     Route: 048
  10. IRON [Concomitant]
     Active Substance: IRON
     Route: 048
  11. NORVASC [Concomitant]
     Active Substance: AMLODIPINE BESYLATE
     Route: 048
  12. SYNTHROID [Concomitant]
     Active Substance: LEVOTHYROXINE SODIUM
     Route: 048

REACTIONS (1)
  - Peripheral swelling [None]
